FAERS Safety Report 21187578 (Version 1)
Quarter: 2022Q3

REPORT INFORMATION
  Report Type: Report from Study
  Country: US (occurrence: US)
  Receive Date: 20220808
  Receipt Date: 20220808
  Transmission Date: 20221026
  Serious: Yes (Other)
  Sender: FDA-Public Use
  Company Number: US-JNJFOC-20220550601

PATIENT
  Age: 77 Year
  Sex: Female

DRUGS (2)
  1. MACITENTAN [Suspect]
     Active Substance: MACITENTAN
     Indication: Pulmonary arterial hypertension
     Dosage: FIRST STARTED OPSUMIT, ABOUT 3-4 YEARS AGO
     Route: 048
  2. MACITENTAN [Suspect]
     Active Substance: MACITENTAN
     Dosage: STARTED ABOUT 5 OR 6 YEARS AGO
     Route: 048

REACTIONS (5)
  - Pneumonia [Unknown]
  - Oxygen saturation decreased [Recovered/Resolved]
  - COVID-19 [Recovered/Resolved]
  - Blood iron decreased [Unknown]
  - Sinus congestion [Recovering/Resolving]

NARRATIVE: CASE EVENT DATE: 20210901
